FAERS Safety Report 7466315-8 (Version None)
Quarter: 2011Q2

REPORT INFORMATION
  Report Type: 
  Country: None (occurrence: None)
  Receive Date: 20110509
  Receipt Date: 20100712
  Transmission Date: 20111010
  Serious: No
  Sender: FDA-Public Use
  Company Number: US-ALEXION-A201000812

PATIENT
  Sex: Male

DRUGS (5)
  1. EXJADE [Concomitant]
     Indication: BLOOD IRON INCREASED
     Dosage: UNK
     Route: 048
  2. SOLIRIS [Suspect]
     Indication: PAROXYSMAL NOCTURNAL HAEMOGLOBINURIA
     Dosage: 600 MG, QWKX4
     Route: 042
     Dates: start: 20090513, end: 20090101
  3. FINASTERIDE [Concomitant]
     Indication: PROSTATOMEGALY
     Dosage: UNK
     Route: 048
  4. SOLIRIS [Suspect]
     Dosage: 900 MG, Q2WKS
     Route: 042
     Dates: start: 20090101
  5. VITAMINS                           /90003601/ [Concomitant]
     Indication: ROUTINE HEALTH MAINTENANCE
     Dosage: UNK
     Route: 048

REACTIONS (1)
  - HAEMOGLOBIN DECREASED [None]
